FAERS Safety Report 9506029 (Version 1)
Quarter: 2013Q1

REPORT INFORMATION
  Report Type: Spontaneous
  Country: US (occurrence: None)
  Receive Date: 20130305
  Receipt Date: 20130305
  Transmission Date: 20140127
  Serious: Yes (Hospitalization, Other)
  Sender: FDA-Public Use
  Company Number: 163-21880-12050310

PATIENT
  Age: 63 Year
  Sex: Female

DRUGS (10)
  1. REVLIMID [Suspect]
     Indication: PLASMA CELL MYELOMA
     Dosage: 25 MG, 21 IN 21 D, PO
     Route: 048
     Dates: start: 20090602
  2. OXYCODONE/ACETAMINOPHEN(OXYCOCET) [Concomitant]
  3. GABAPENTIN(GABAPENTIN) [Concomitant]
  4. VITAMIN D WITH MINERAL(ERGOCALCIFEROL) [Concomitant]
  5. OXYCONTIN(OXYCODONE HYDROCHLORIDE) [Concomitant]
  6. OXYCODONE(OXYCODONE) [Concomitant]
  7. COUMADIN(WARFARIN SODIUM) [Concomitant]
  8. VELCADE [Concomitant]
  9. DECADRON(DEXAMETHASONE) [Concomitant]
  10. EMPERIC ANTIBITOCIS [Concomitant]

REACTIONS (2)
  - Rib fracture [None]
  - Fall [None]
